FAERS Safety Report 10214317 (Version 2)
Quarter: 2014Q2

REPORT INFORMATION
  Report Type: Spontaneous
  Country: US (occurrence: US)
  Receive Date: 20140603
  Receipt Date: 20140603
  Transmission Date: 20141212
  Serious: Yes (Other)
  Sender: FDA-Public Use
  Company Number: US-PURDUE-USA-2014-0113468

PATIENT
  Age: 55 Year
  Sex: Male

DRUGS (3)
  1. BUTRANS [Suspect]
     Indication: PAIN
     Dosage: 20 MCG/HR, WEEKLY
     Route: 062
     Dates: start: 20140411, end: 20140428
  2. BUTRANS [Suspect]
     Indication: OSTEOARTHRITIS
  3. PERCOCET                           /00446701/ [Concomitant]
     Indication: BREAKTHROUGH PAIN

REACTIONS (4)
  - Crohn^s disease [Unknown]
  - Haematochezia [Unknown]
  - Constipation [Unknown]
  - Nausea [Unknown]
